FAERS Safety Report 7729647-1 (Version None)
Quarter: 2011Q3

REPORT INFORMATION
  Report Type: 
  Country: None (occurrence: None)
  Receive Date: 20110901
  Receipt Date: 20110901
  Transmission Date: 20111222
  Serious: Yes (Hospitalization)
  Sender: FDA-Public Use
  Company Number: None

PATIENT
  Age: 68 Year
  Sex: Male
  Weight: 99.5 kg

DRUGS (1)
  1. DAPTOMYCIN [Suspect]
     Indication: OSTEOMYELITIS
     Dosage: 600 MG OTHER IV
     Route: 042
     Dates: start: 20110523, end: 20110616

REACTIONS (6)
  - FAECES DISCOLOURED [None]
  - SLEEP DISORDER [None]
  - HAEMATOCRIT DECREASED [None]
  - WEIGHT INCREASED [None]
  - EOSINOPHILIC PNEUMONIA [None]
  - DECREASED APPETITE [None]
